FAERS Safety Report 7734964-5 (Version None)
Quarter: 2011Q3

REPORT INFORMATION
  Report Type: 
  Country: None (occurrence: None)
  Receive Date: 20110907
  Receipt Date: 20110829
  Transmission Date: 20111222
  Serious: Yes (Hospitalization)
  Sender: FDA-Public Use
  Company Number: PHHO2011NL13469

PATIENT
  Sex: Female
  Weight: 90.4 kg

DRUGS (11)
  1. EPIRUBICIN [Suspect]
     Indication: BREAST CANCER
     Dosage: 2.08 MG, UNK
     Route: 042
     Dates: start: 20110502
  2. ASCAL [Concomitant]
     Indication: VASCULAR GRAFT
  3. HYDROCHLOROTHIAZIDE [Concomitant]
     Indication: HYPERTENSION
     Dosage: 12.5 MG, QD
     Route: 048
     Dates: start: 20050101, end: 20110807
  4. DICLOFENAC SODIUM [Concomitant]
     Indication: PAIN
     Dosage: 50 MG, 3X1
     Route: 048
  5. NO TREATMENT RECEIVED [Suspect]
     Indication: BREAST CANCER
     Dosage: NO TREATMENT
  6. ASCAL [Concomitant]
     Indication: CORONARY ANGIOPLASTY
     Dosage: 100 MG, QD
     Route: 048
     Dates: start: 20000101
  7. FLUOROURACIL [Suspect]
     Indication: BREAST CANCER
     Dosage: 1040 MG, UNK
     Route: 042
     Dates: start: 20110502
  8. CYCLOPHOSPHAMIDE [Suspect]
     Indication: BREAST CANCER
     Dosage: 1040 MG, UNK
     Dates: start: 20110502
  9. ZOCOR [Concomitant]
     Indication: PROPHYLAXIS
     Dosage: 20 MG, QD
     Route: 048
     Dates: start: 20000101
  10. ENALAPRIL MALEATE [Concomitant]
     Indication: HYPERTENSION
     Dosage: 10 MG, QD
     Route: 048
     Dates: end: 20110831
  11. OMEPRAZOLE [Concomitant]
     Indication: GASTROOESOPHAGEAL REFLUX DISEASE
     Dosage: 20 MG, QD
     Route: 048

REACTIONS (1)
  - UROSEPSIS [None]
